FAERS Safety Report 6667640-0 (Version None)
Quarter: 2010Q2

REPORT INFORMATION
  Report Type: 
  Country: None (occurrence: None)
  Receive Date: 20100405
  Receipt Date: 20100331
  Transmission Date: 20101027
  Serious: Yes (Other)
  Sender: FDA-Public Use
  Company Number: A0852922A

PATIENT
  Age: 69 Year
  Sex: Female

DRUGS (4)
  1. LOVAZA [Suspect]
     Indication: BLOOD CHOLESTEROL INCREASED
     Dosage: 4CAP PER DAY
     Route: 048
     Dates: start: 20090901, end: 20100329
  2. METOPROLOL SUCCINATE [Concomitant]
  3. DIAVAN [Concomitant]
  4. TYLENOL-500 [Concomitant]

REACTIONS (2)
  - ANAL HAEMORRHAGE [None]
  - CONDITION AGGRAVATED [None]
